FAERS Safety Report 23514020 (Version 5)
Quarter: 2024Q2

REPORT INFORMATION
  Report Type: Spontaneous
  Country: CA (occurrence: CA)
  Receive Date: 20240212
  Receipt Date: 20240409
  Transmission Date: 20240715
  Serious: Yes (Other)
  Sender: FDA-Public Use
  Company Number: CA-PFIZER INC-202400035020

PATIENT
  Age: 33 Year
  Sex: Female

DRUGS (2)
  1. ABRILADA [Suspect]
     Active Substance: ADALIMUMAB-AFZB
     Indication: Psoriatic arthropathy
     Dosage: 40 MG, EVERY 2 WEEKS
     Route: 058
     Dates: start: 20221117
  2. ABRILADA [Suspect]
     Active Substance: ADALIMUMAB-AFZB
     Dosage: 40 MG, EVERY 2 WEEKS
     Route: 058
     Dates: start: 20240129

REACTIONS (5)
  - Paralysis [Unknown]
  - Electric shock sensation [Unknown]
  - Pain in extremity [Unknown]
  - Gait inability [Unknown]
  - Injection site nerve damage [Unknown]

NARRATIVE: CASE EVENT DATE: 20240101
